FAERS Safety Report 24135509 (Version 2)
Quarter: 2024Q3

REPORT INFORMATION
  Report Type: Spontaneous
  Country: US (occurrence: US)
  Receive Date: 20240725
  Receipt Date: 20240919
  Transmission Date: 20241016
  Serious: Yes (Other)
  Sender: HIKMA
  Company Number: US-HIKMA PHARMACEUTICALS USA INC.-US-H14001-24-06494

PATIENT
  Age: 78 Year
  Sex: Male
  Weight: 65 kg

DRUGS (5)
  1. METHOTREXATE [Suspect]
     Active Substance: METHOTREXATE
     Indication: Central nervous system lymphoma
     Dosage: HIGH DOSE; 6.1 G IN SODIUM CHLORIDE 0.9% (NS) 500 ML IVPB, 1 OF 6 CYCLES
     Route: 065
     Dates: start: 20230217, end: 20230710
  2. RUXIENCE [Suspect]
     Active Substance: RITUXIMAB-PVVR
     Indication: Central nervous system lymphoma
     Dosage: 700 MG IN SODIUM CHLORIDE 0.9% (NS), 700 ML IVPB (STANDARD INFUSION) 1 OF 6 CYCLES
     Route: 042
     Dates: start: 20230217, end: 20230710
  3. SODIUM CHLORIDE [Suspect]
     Active Substance: SODIUM CHLORIDE
     Indication: Product used for unknown indication
     Dosage: 500 MILLILITER,  WITH METHOTREXATE 1 OF 6 CYCLES
     Route: 042
     Dates: start: 2023
  4. DEXAMETHASONE [Concomitant]
     Active Substance: DEXAMETHASONE
     Indication: Brain oedema
     Dosage: UNK
     Route: 065
  5. SODIUM CHLORIDE [Concomitant]
     Active Substance: SODIUM CHLORIDE
     Indication: Product used for unknown indication
     Dosage: 700 MILLILITER, WITH RITUXIMAB 1 OF 6 CYCLES
     Route: 042
     Dates: start: 2023

REACTIONS (2)
  - Leukoencephalopathy [Recovered/Resolved]
  - Cognitive disorder [Recovered/Resolved]

NARRATIVE: CASE EVENT DATE: 20230627
